FAERS Safety Report 12161141 (Version 5)
Quarter: 2018Q3

REPORT INFORMATION
  Report Type: Spontaneous
  Country: US (occurrence: US)
  Receive Date: 20160308
  Receipt Date: 20180706
  Transmission Date: 20181010
  Serious: Yes (Hospitalization, Other)
  Sender: FDA-Public Use
  Company Number: US-BIOGEN-2015BI00165782

PATIENT
  Sex: Female
  Weight: 79 kg

DRUGS (9)
  1. TECFIDERA [Suspect]
     Active Substance: DIMETHYL FUMARATE
     Dosage: MAINTENANCE DOSE
     Route: 048
     Dates: start: 2014
  2. PROVIGIL [Concomitant]
     Active Substance: MODAFINIL
     Route: 048
  3. VITAMIN D [Concomitant]
     Active Substance: CHOLECALCIFEROL
     Route: 065
  4. TYLENOL PM [Concomitant]
     Active Substance: ACETAMINOPHEN\DIPHENHYDRAMINE
     Indication: SLEEP DISORDER
     Route: 065
  5. TECFIDERA [Suspect]
     Active Substance: DIMETHYL FUMARATE
     Indication: MULTIPLE SCLEROSIS
     Dosage: STARTING DOSE
     Route: 048
     Dates: start: 2013
  6. TECFIDERA [Suspect]
     Active Substance: DIMETHYL FUMARATE
     Dosage: MAINTENANCE DOSE
     Route: 048
     Dates: start: 20140104
  7. TECFIDERA [Suspect]
     Active Substance: DIMETHYL FUMARATE
     Dosage: STARTING DOSE
     Route: 048
     Dates: start: 20131227, end: 20140103
  8. PROVIGIL [Concomitant]
     Active Substance: MODAFINIL
     Indication: FATIGUE
     Route: 048
  9. VITAMIN D [Concomitant]
     Active Substance: CHOLECALCIFEROL
     Indication: VITAMIN D DEFICIENCY
     Route: 065

REACTIONS (9)
  - Spinal subdural haematoma [Unknown]
  - Allergy to metals [Recovered/Resolved]
  - Delayed recovery from anaesthesia [Recovered/Resolved]
  - Migraine [Recovered/Resolved]
  - Gastrointestinal disorder [Not Recovered/Not Resolved]
  - Procedural hypotension [Recovered/Resolved]
  - Peripheral swelling [Unknown]
  - Infection [Recovered/Resolved]
  - Spinal operation [Recovered/Resolved]

NARRATIVE: CASE EVENT DATE: 2015
